FAERS Safety Report 11030922 (Version 2)
Quarter: 2015Q2

REPORT INFORMATION
  Report Type: Spontaneous
  Country: US (occurrence: US)
  Receive Date: 20150415
  Receipt Date: 20150604
  Transmission Date: 20150821
  Serious: Yes (Other)
  Sender: FDA-Public Use
  Company Number: CHPA2015US004980

PATIENT
  Age: 77 Year
  Sex: Female

DRUGS (3)
  1. VOLTAREN [Suspect]
     Active Substance: DICLOFENAC SODIUM
     Indication: ARTHRITIS
     Dosage: 2 G, QID TO FINGERS
     Route: 061
     Dates: start: 2014, end: 2014
  2. VOLTAREN [Suspect]
     Active Substance: DICLOFENAC SODIUM
     Dosage: UNK, BID TO ELBOW, ARM, AND SHOULDER
     Route: 061
     Dates: start: 20150410
  3. VOLTAREN [Suspect]
     Active Substance: DICLOFENAC SODIUM
     Indication: PERIPHERAL SWELLING
     Dosage: 4 G, BID FROM LOWER BACK TO EACH LEG
     Route: 061
     Dates: start: 20150410

REACTIONS (9)
  - Pain in extremity [Not Recovered/Not Resolved]
  - Drug administered at inappropriate site [Unknown]
  - Muscle spasms [Unknown]
  - Wrong technique in drug usage process [Unknown]
  - Inappropriate schedule of drug administration [Unknown]
  - Exostosis [Not Recovered/Not Resolved]
  - Product use issue [Unknown]
  - Cataract [Recovering/Resolving]
  - Drug ineffective [Unknown]

NARRATIVE: CASE EVENT DATE: 2014
